FAERS Safety Report 9222467 (Version 4)
Quarter: 2013Q3

REPORT INFORMATION
  Report Type: Report from Study
  Country: NL (occurrence: NL)
  Receive Date: 20130410
  Receipt Date: 20130917
  Transmission Date: 20140515
  Serious: Yes (Other)
  Sender: FDA-Public Use
  Company Number: NL-CELGENEUS-114-20785-13034649

PATIENT
  Age: 75 Year
  Sex: Female
  Weight: 62 kg

DRUGS (4)
  1. THALIDOMIDE [Suspect]
     Indication: PLASMA CELL MYELOMA
     Dosage: 50 MILLIGRAM
     Route: 048
     Dates: start: 20090709, end: 20100426
  2. REVLIMID [Suspect]
     Indication: PLASMA CELL MYELOMA
     Dosage: 10 MILLIGRAM
     Route: 048
     Dates: start: 20120131, end: 20120725
  3. MELPHALAN [Suspect]
     Indication: PLASMA CELL MYELOMA
     Route: 065
  4. DEXAMETHASONE [Concomitant]
     Indication: PLASMA CELL MYELOMA
     Route: 048
     Dates: start: 20120131, end: 20120725

REACTIONS (1)
  - Malignant melanoma [Recovered/Resolved]
